FAERS Safety Report 9773301 (Version 1)
Quarter: 2013Q4

REPORT INFORMATION
  Report Type: Spontaneous
  Country: US (occurrence: US)
  Receive Date: 20131219
  Receipt Date: 20131219
  Transmission Date: 20140711
  Serious: Yes (Hospitalization)
  Sender: FDA-Public Use
  Company Number: US-DENDREON CORPORATION-2013PROUSA03368

PATIENT
  Age: 76 Year
  Sex: Male

DRUGS (2)
  1. PROVENGE [Suspect]
     Indication: PROSTATE CANCER METASTATIC
     Dosage: 250 ML, SINGLE
     Route: 042
     Dates: start: 20131111, end: 20131111
  2. PROVENGE [Suspect]
     Dosage: 250 ML, SINGLE
     Route: 042
     Dates: start: 20131125, end: 20131125

REACTIONS (2)
  - Pneumonia [Not Recovered/Not Resolved]
  - Malaise [Not Recovered/Not Resolved]
